FAERS Safety Report 4472206-7 (Version None)
Quarter: 2004Q4

REPORT INFORMATION
  Report Type: 
  Country: None (occurrence: None)
  Receive Date: 20041012
  Receipt Date: 20041006
  Transmission Date: 20050328
  Serious: Yes (Life-Threatening, Hospitalization)
  Sender: FDA-Public Use
  Company Number: US-MERCK-0410USA00858

PATIENT
  Age: 53 Year
  Sex: Female

DRUGS (3)
  1. [THERAPY UNSPECIFIED] [Concomitant]
     Indication: DIABETES MELLITUS
     Route: 065
  2. NEXIUM [Concomitant]
     Route: 065
  3. VIOXX [Suspect]
     Indication: BURSITIS
     Route: 048
     Dates: start: 20030101, end: 20040503

REACTIONS (1)
  - MYOCARDIAL INFARCTION [None]
